FAERS Safety Report 5394785-8 (Version None)
Quarter: 2007Q3

REPORT INFORMATION
  Report Type: 
  Country: None (occurrence: None)
  Receive Date: 20070723
  Receipt Date: 20070712
  Transmission Date: 20080115
  Serious: Yes (Hospitalization, Other)
  Sender: FDA-Public Use
  Company Number: US-PFIZER INC-2007058432

PATIENT
  Sex: Male
  Weight: 54.4 kg

DRUGS (3)
  1. CELEBREX [Suspect]
     Dates: start: 20031021, end: 20040105
  2. IBUPROFEN [Concomitant]
  3. ACETYLSALICYLIC ACID SRT [Concomitant]

REACTIONS (2)
  - AMNESIA [None]
  - CEREBROVASCULAR ACCIDENT [None]
